FAERS Safety Report 8011791-5 (Version None)
Quarter: 2011Q4

REPORT INFORMATION
  Report Type: 
  Country: None (occurrence: None)
  Receive Date: 20111228
  Receipt Date: 20111219
  Transmission Date: 20120403
  Serious: Yes (Other)
  Sender: FDA-Public Use
  Company Number: AU-ABBOTT-11P-008-0880941-00

PATIENT
  Sex: Female

DRUGS (2)
  1. AZATHIOPRINE [Concomitant]
     Indication: PRODUCT USED FOR UNKNOWN INDICATION
  2. HUMIRA [Suspect]
     Indication: PRODUCT USED FOR UNKNOWN INDICATION

REACTIONS (5)
  - ANAL FISTULA [None]
  - ANAL ULCER [None]
  - GASTROINTESTINAL STOMA COMPLICATION [None]
  - ANORECTAL DISORDER [None]
  - CROHN'S DISEASE [None]
